APPROVED DRUG PRODUCT: PROTOPAM CHLORIDE
Active Ingredient: PRALIDOXIME CHLORIDE
Strength: 500MG
Dosage Form/Route: TABLET;ORAL
Application: N014122 | Product #002
Applicant: WYETH AYERST LABORATORIES
Approved: Approved Prior to Jan 1, 1982 | RLD: No | RS: No | Type: DISCN